FAERS Safety Report 18280322 (Version 1)
Quarter: 2020Q3

REPORT INFORMATION
  Report Type: Spontaneous
  Country: US (occurrence: US)
  Receive Date: 20200918
  Receipt Date: 20200918
  Transmission Date: 20201103
  Serious: No
  Sender: FDA-Public Use
  Company Number: US-JNJFOC-20200920761

PATIENT
  Age: 30 Month
  Sex: Male
  Weight: 14.53 kg

DRUGS (2)
  1. CHILDRENS ZYRTEC [Suspect]
     Active Substance: CETIRIZINE HYDROCHLORIDE
     Indication: LYMPHADENOPATHY
     Route: 065
     Dates: start: 2020
  2. CHILDRENS ZYRTEC [Suspect]
     Active Substance: CETIRIZINE HYDROCHLORIDE
     Dosage: 2.5 ML AND 5 ML IN ONE DAY
     Route: 065
     Dates: start: 20200905

REACTIONS (4)
  - Off label use [Unknown]
  - Accidental overdose [Unknown]
  - Therapeutic response unexpected [Unknown]
  - Product use in unapproved indication [Unknown]

NARRATIVE: CASE EVENT DATE: 2020
